FAERS Safety Report 5442520-7 (Version None)
Quarter: 2007Q3

REPORT INFORMATION
  Report Type: 
  Country: None (occurrence: None)
  Receive Date: 20070830
  Receipt Date: 20070821
  Transmission Date: 20080115
  Serious: Yes (Other)
  Sender: FDA-Public Use
  Company Number: SPV1-2007-03830

PATIENT
  Age: 48 Year
  Sex: Female

DRUGS (3)
  1. EQUETRO [Suspect]
     Indication: CONVULSION
     Dosage: 100 MG IN THE AM AND 200 MG IN THE PM, ORAL
     Route: 048
     Dates: start: 20070101, end: 20070710
  2. ZONEGRAN (ZONISAMIDE) TABLET [Concomitant]
  3. SONATA (CARISOPRODOL) [Concomitant]

REACTIONS (5)
  - CONDITION AGGRAVATED [None]
  - CONVULSION [None]
  - DRUG DISPENSING ERROR [None]
  - DRUG LEVEL BELOW THERAPEUTIC [None]
  - WRONG DRUG ADMINISTERED [None]
